FAERS Safety Report 4619750-7 (Version None)
Quarter: 2005Q1

REPORT INFORMATION
  Report Type: 
  Country: None (occurrence: None)
  Receive Date: 20050325
  Receipt Date: 20040806
  Transmission Date: 20050727
  Serious: Yes (Other)
  Sender: FDA-Public Use
  Company Number: GB-MERCK-0408GBR00080

PATIENT
  Age: 62 Year
  Sex: Female

DRUGS (2)
  1. ZETIA [Suspect]
     Route: 048
     Dates: end: 20041101
  2. ZOCOR [Concomitant]
     Route: 065
     Dates: end: 20041101

REACTIONS (14)
  - ADRENAL MASS [None]
  - ASPARTATE AMINOTRANSFERASE INCREASED [None]
  - BLOOD ALKALINE PHOSPHATASE INCREASED [None]
  - BLOOD BILIRUBIN INCREASED [None]
  - BLOOD SODIUM DECREASED [None]
  - HAEMATOCRIT DECREASED [None]
  - HEPATIC MASS [None]
  - MASS [None]
  - MEAN CELL HAEMOGLOBIN CONCENTRATION DECREASED [None]
  - PLATELET COUNT INCREASED [None]
  - PRURITUS [None]
  - SOFT TISSUE DISORDER [None]
  - UTERINE LEIOMYOMA [None]
  - UTERINE MASS [None]
